FAERS Safety Report 8766347 (Version 1)
Quarter: 2012Q4

REPORT INFORMATION
  Report Type: 
  Country: US (occurrence: US)
  Receive Date: 20120904
  Receipt Date: 20120904
  Transmission Date: 20130627
  Serious: Yes (Other)
  Sender: FDA-Public Use
  Company Number: US-MERCK-1208USA011686

PATIENT
  Age: 23 Year
  Sex: Female
  Weight: 61.22 kg

DRUGS (4)
  1. REBETOL [Suspect]
     Indication: HEPATITIS C
     Dosage: 2 DF, UNK, 2 in am - 3 in pm
     Route: 048
     Dates: start: 20120319, end: 20120323
  2. PEGASYS [Concomitant]
     Dosage: 1 DF, Once
     Dates: start: 20120319, end: 20120319
  3. PEGASYS [Concomitant]
     Dosage: 1 DF, Once
     Dates: start: 20120323, end: 20120323
  4. ALBUTEROL [Concomitant]
     Dosage: UNK, prn
     Route: 055

REACTIONS (2)
  - Abortion spontaneous [Unknown]
  - Exposure during pregnancy [Recovered/Resolved]
